FAERS Safety Report 4568309-9 (Version None)
Quarter: 2005Q1

REPORT INFORMATION
  Report Type: 
  Country: None (occurrence: None)
  Receive Date: 20050202
  Receipt Date: 20050201
  Transmission Date: 20050727
  Serious: Yes (Other)
  Sender: FDA-Public Use
  Company Number: DE-GLAXOSMITHKLINE-D0045778A

PATIENT
  Age: 33 Year
  Sex: Male
  Weight: 75 kg

DRUGS (2)
  1. QUILONUM RETARD [Suspect]
     Dosage: 50TAB SINGLE DOSE
     Route: 048
  2. THYRONAJOD [Suspect]
     Dosage: 1200MG PER DAY
     Route: 048

REACTIONS (2)
  - SUICIDE ATTEMPT [None]
  - VOMITING [None]
